FAERS Safety Report 4988490-7 (Version None)
Quarter: 2006Q2

REPORT INFORMATION
  Report Type: 
  Country: None (occurrence: None)
  Receive Date: 20060502
  Receipt Date: 20060123
  Transmission Date: 20061013
  Serious: No
  Sender: FDA-Public Use
  Company Number: US-GLAXOSMITHKLINE-A0590475A

PATIENT
  Age: 57 Year
  Sex: Male

DRUGS (9)
  1. AMOXIL [Suspect]
     Indication: SKIN INFECTION
     Route: 048
  2. AVANDIA [Suspect]
     Dosage: 8MG TWICE PER DAY
     Route: 048
  3. METFORMIN [Concomitant]
  4. STARLIX [Concomitant]
  5. FUROSEMIDE [Concomitant]
  6. POTASSIUM SUPPLEMENT [Concomitant]
  7. LIPITOR [Concomitant]
  8. NORVASC [Concomitant]
  9. NEURONTIN [Concomitant]

REACTIONS (3)
  - OEDEMA PERIPHERAL [None]
  - OVERDOSE [None]
  - PRURITUS [None]
